FAERS Safety Report 25613996 (Version 2)
Quarter: 2025Q3

REPORT INFORMATION
  Report Type: Spontaneous
  Country: JP (occurrence: JP)
  Receive Date: 20250728
  Receipt Date: 20250801
  Transmission Date: 20251020
  Serious: Yes (Death)
  Sender: EISAI
  Company Number: JP-Eisai-EC-2025-194046

PATIENT
  Sex: Male

DRUGS (9)
  1. LENVIMA [Suspect]
     Active Substance: LENVATINIB
     Indication: Renal cell carcinoma
     Dosage: ADMINISTRATION OF 3-DOSE AND 4-INTERRUPTION
     Dates: start: 202407, end: 20241009
  2. LENVIMA [Suspect]
     Active Substance: LENVATINIB
     Dosage: ADMINISTRATION OF 4-DOSE AND 3-INTERRUPTION
     Dates: start: 20241029, end: 20241106
  3. LENVIMA [Suspect]
     Active Substance: LENVATINIB
     Dosage: ADMINISTRATION OF 4-DOSE AND 3-INTERRUPTION
     Dates: start: 20241113, end: 20241204
  4. LENVIMA [Suspect]
     Active Substance: LENVATINIB
  5. LENVIMA [Suspect]
     Active Substance: LENVATINIB
     Dosage: ADMINISTRATION OF 3-DOSE AND 4-INTERRUPTION
     Dates: start: 20250205, end: 20250528
  6. LENVIMA [Suspect]
     Active Substance: LENVATINIB
     Dosage: ADMINISTRATION OF 3-DOSE AND 4-INTERRUPTION
     Dates: start: 20250702
  7. KEYTRUDA [Suspect]
     Active Substance: PEMBROLIZUMAB
     Indication: Renal cell carcinoma
     Dates: start: 202407, end: 20240925
  8. KEYTRUDA [Suspect]
     Active Substance: PEMBROLIZUMAB
     Dates: start: 20250205, end: 20250409
  9. LOPEMIN [Concomitant]
     Indication: Diarrhoea

REACTIONS (1)
  - Septic shock [Fatal]

NARRATIVE: CASE EVENT DATE: 20250712
